FAERS Safety Report 6227407-4 (Version None)
Quarter: 2009Q2

REPORT INFORMATION
  Report Type: 
  Country: None (occurrence: None)
  Receive Date: 20090610
  Receipt Date: 20090610
  Transmission Date: 20091009
  Serious: Yes (Other)
  Sender: FDA-Public Use
  Company Number: None

PATIENT
  Age: 54 Year
  Sex: Female
  Weight: 104.3273 kg

DRUGS (1)
  1. DETROL LA [Suspect]
     Indication: URGE INCONTINENCE
     Dosage: UNKNOWN ONE TIME PO
     Route: 048
     Dates: start: 20090221, end: 20090221

REACTIONS (2)
  - DRUG HYPERSENSITIVITY [None]
  - OROPHARYNGEAL PAIN [None]
